FAERS Safety Report 18429051 (Version 1)
Quarter: 2020Q4

REPORT INFORMATION
  Report Type: Spontaneous
  Country: FI (occurrence: FI)
  Receive Date: 20201027
  Receipt Date: 20201027
  Transmission Date: 20210114
  Serious: Yes (Life-Threatening)
  Sender: FDA-Public Use
  Company Number: FI-BEH-2020123840

PATIENT
  Age: 85 Year
  Sex: Male

DRUGS (6)
  1. NOVORAPID [Concomitant]
     Active Substance: INSULIN ASPART
     Indication: HYPERGLYCAEMIA
     Dosage: 3,IU,
     Route: 065
  2. LIDOCAINE HYDROCHLORIDE. [Concomitant]
     Active Substance: LIDOCAINE HYDROCHLORIDE
     Indication: LOCAL ANAESTHESIA
     Dosage: 5 MILLILITER
     Route: 065
  3. FENTANYL HAMELN [Concomitant]
     Active Substance: FENTANYL CITRATE
     Indication: PAIN PROPHYLAXIS
     Dosage: 100,?G,
     Route: 065
  4. ALBUREX [Suspect]
     Active Substance: ALBUMIN HUMAN
     Indication: BLOOD VOLUME EXPANSION
     Dosage: 100 MILLILITER, TOT
     Route: 042
     Dates: start: 20201010, end: 20201010
  5. BICAIN [Concomitant]
     Indication: SPINAL ANAESTHESIA
     Dosage: 13 MILLIGRAM
     Route: 065
  6. RINGER-ACETAT BAXTER VIAFLO [Concomitant]
     Indication: FLUID REPLACEMENT
     Route: 042

REACTIONS (2)
  - Hypersensitivity [Not Recovered/Not Resolved]
  - Anaphylactic reaction [Not Recovered/Not Resolved]

NARRATIVE: CASE EVENT DATE: 20201010
